FAERS Safety Report 19963393 (Version 1)
Quarter: 2021Q4

REPORT INFORMATION
  Report Type: Spontaneous
  Country: IT (occurrence: IT)
  Receive Date: 20211018
  Receipt Date: 20211018
  Transmission Date: 20220304
  Serious: Yes (Other)
  Sender: FDA-Public Use
  Company Number: IT-MICRO LABS LIMITED-ML2021-02359

PATIENT
  Age: 69 Year
  Sex: Male

DRUGS (1)
  1. ISOPROTERENOL [Suspect]
     Active Substance: ISOPROTERENOL
     Indication: Atrioventricular block

REACTIONS (2)
  - Atrial fibrillation [Unknown]
  - Ventricular tachycardia [Unknown]
